FAERS Safety Report 20175703 (Version 1)
Quarter: 2021Q4

REPORT INFORMATION
  Report Type: Spontaneous
  Country: US (occurrence: US)
  Receive Date: 20211213
  Receipt Date: 20211213
  Transmission Date: 20220303
  Serious: No
  Sender: FDA-Public Use
  Company Number: US-PFIZER INC-2021606274

PATIENT
  Age: 65 Year
  Sex: Female

DRUGS (3)
  1. XELJANZ XR [Interacting]
     Active Substance: TOFACITINIB CITRATE
     Dosage: 11 MG, UNK
  2. ROSUVASTATIN [Interacting]
     Active Substance: ROSUVASTATIN
     Dosage: 5 MG
     Dates: start: 20211120
  3. ROSUVASTATIN [Interacting]
     Active Substance: ROSUVASTATIN
     Dosage: 5 MG
     Dates: start: 20211120

REACTIONS (5)
  - Dyspnoea [Unknown]
  - Weight increased [Unknown]
  - Feeling abnormal [Unknown]
  - Heart rate increased [Unknown]
  - Drug interaction [Unknown]
